FAERS Safety Report 9360493 (Version 1)
Quarter: 2013Q2

REPORT INFORMATION
  Report Type: Spontaneous
  Country: AU (occurrence: AU)
  Receive Date: 20130621
  Receipt Date: 20130621
  Transmission Date: 20140414
  Serious: Yes (Other)
  Sender: FDA-Public Use
  Company Number: AU-JNJFOC-20130606307

PATIENT
  Age: 18 Year
  Sex: Female

DRUGS (3)
  1. REMICADE [Suspect]
     Indication: CROHN^S DISEASE
     Route: 042
  2. REMICADE [Suspect]
     Indication: CROHN^S DISEASE
     Dosage: RECEIVED 4 INFUSIONS IN 2010/2011
     Route: 042
  3. HYDROCORTISONE [Concomitant]
     Indication: PREMEDICATION
     Route: 065

REACTIONS (3)
  - Surgery [Unknown]
  - Local swelling [Recovering/Resolving]
  - Arthralgia [Recovering/Resolving]
